FAERS Safety Report 7627585-6 (Version None)
Quarter: 2011Q3

REPORT INFORMATION
  Report Type: 
  Country: None (occurrence: None)
  Receive Date: 20110721
  Receipt Date: 20110719
  Transmission Date: 20111222
  Serious: Yes (Other)
  Sender: FDA-Public Use
  Company Number: US-AMGEN-QUU389170

PATIENT
  Age: 63 Year
  Sex: Female
  Weight: 168 kg

DRUGS (9)
  1. CYCLOPHOSPHAMIDE [Concomitant]
     Dosage: UNK UNK, UNK
     Dates: end: 20090901
  2. ELTROMBOPAG [Concomitant]
     Dosage: UNK UNK, UNK
     Dates: start: 20090201, end: 20090601
  3. CORTICOSTEROID NOS [Concomitant]
  4. NPLATE [Suspect]
     Indication: IDIOPATHIC THROMBOCYTOPENIC PURPURA
     Dosage: 750 A?G, QWK
     Route: 058
     Dates: start: 20090629, end: 20090629
  5. RITUXIMAB [Concomitant]
     Dosage: UNK UNK, UNK
     Dates: start: 20031103, end: 20100311
  6. DANAZOL [Concomitant]
     Dosage: 200 MG, BID
  7. DEXAMETHASONE [Concomitant]
  8. IMMUNOGLOBULINS [Concomitant]
     Dosage: UNK UNK, UNK
     Dates: start: 20050105
  9. VINCRISTINE SULFATE [Concomitant]
     Dosage: UNK UNK, UNK
     Dates: start: 20100107, end: 20100311

REACTIONS (11)
  - MYELOFIBROSIS [None]
  - CHRONIC LYMPHOCYTIC LEUKAEMIA [None]
  - MUCOSAL HAEMORRHAGE [None]
  - IRON DEFICIENCY [None]
  - EPISTAXIS [None]
  - INCREASED TENDENCY TO BRUISE [None]
  - VAGINAL HAEMORRHAGE [None]
  - ANAL HAEMORRHAGE [None]
  - B-CELL SMALL LYMPHOCYTIC LYMPHOMA [None]
  - THERAPEUTIC RESPONSE DECREASED [None]
  - LEUKOCYTOSIS [None]
